FAERS Safety Report 19014943 (Version 7)
Quarter: 2022Q4

REPORT INFORMATION
  Report Type: Report from Study
  Country: JP (occurrence: JP)
  Receive Date: 20210317
  Receipt Date: 20221214
  Transmission Date: 20230113
  Serious: Yes (Hospitalization, Other)
  Sender: FDA-Public Use
  Company Number: JP-ONO-2020JP015795

PATIENT
  Age: 37 Year
  Sex: Male
  Weight: 57.3 kg

DRUGS (15)
  1. ETELCALCETIDE [Suspect]
     Active Substance: ETELCALCETIDE
     Indication: Hyperparathyroidism secondary
     Dosage: 5 MG, Q56H
     Route: 010
     Dates: start: 20190914
  2. CALCITRIOL [Concomitant]
     Active Substance: CALCITRIOL
     Dosage: 0.5 MICROGRAM, Q56H
     Route: 042
     Dates: start: 20191116, end: 20191128
  3. CALCITRIOL [Concomitant]
     Active Substance: CALCITRIOL
     Dosage: 1 MICROGRAM, Q56H
     Route: 042
     Dates: start: 20191130, end: 20191212
  4. CALCITRIOL [Concomitant]
     Active Substance: CALCITRIOL
     Dosage: 1.5 MICROGRAM, Q56H
     Route: 042
     Dates: start: 20191214, end: 20200130
  5. CALCITRIOL [Concomitant]
     Active Substance: CALCITRIOL
     Dosage: 1 MICROGRAM, Q56H
     Route: 042
     Dates: start: 20200201
  6. TANKARU [Concomitant]
     Dosage: 3000 MG, EVERYDAY
     Route: 065
     Dates: end: 20191007
  7. TANKARU [Concomitant]
     Dosage: 1000 MG, EVERYDAY
     Route: 065
     Dates: start: 20191008, end: 20200113
  8. TANKARU [Concomitant]
     Dosage: 1500 MG, EVERYDAY
     Route: 065
     Dates: start: 20200114
  9. FOSRENOL [Concomitant]
     Active Substance: LANTHANUM CARBONATE
     Dosage: 2250 MG, EVERYDAY
     Route: 048
     Dates: end: 20190812
  10. FOSRENOL [Concomitant]
     Active Substance: LANTHANUM CARBONATE
     Dosage: 1500 MG, EVERYDAY
     Route: 048
     Dates: start: 20190813
  11. P-tol [Concomitant]
     Dosage: 750 MG, EVERYDAY
     Route: 048
     Dates: end: 20190909
  12. P-tol [Concomitant]
     Dosage: 500 MG, EVERYDAY
     Route: 048
     Dates: start: 20190910, end: 20200309
  13. P-tol [Concomitant]
     Dosage: 750 MG, EVERYDAY
     Route: 048
     Dates: start: 20200310, end: 20200413
  14. P-tol [Concomitant]
     Dosage: 500 MG, EVERYDAY
     Route: 048
     Dates: start: 20200414, end: 20220706
  15. P-tol [Concomitant]
     Dosage: 750 MG, EVERYDAY
     Route: 048
     Dates: start: 20220707

REACTIONS (10)
  - Putamen haemorrhage [Recovered/Resolved]
  - Shunt occlusion [Recovered/Resolved]
  - Lacunar infarction [Recovered/Resolved]
  - Shunt stenosis [Recovered/Resolved]
  - Shunt stenosis [Recovered/Resolved]
  - Shunt stenosis [Recovered/Resolved]
  - Shunt stenosis [Recovered/Resolved]
  - Shunt stenosis [Recovered/Resolved]
  - Shunt stenosis [Recovered/Resolved]
  - Shunt stenosis [Recovered/Resolved]

NARRATIVE: CASE EVENT DATE: 20191212
